FAERS Safety Report 19669086 (Version 1)
Quarter: 2021Q3

REPORT INFORMATION
  Report Type: Spontaneous
  Country: US (occurrence: US)
  Receive Date: 20210806
  Receipt Date: 20210806
  Transmission Date: 20211014
  Serious: Yes (Other)
  Sender: FDA-Public Use
  Company Number: US-ACCORD-134929

PATIENT
  Age: 54 Year
  Sex: Female
  Weight: 81.65 kg

DRUGS (4)
  1. LOSARTAN. [Concomitant]
     Active Substance: LOSARTAN
     Dates: start: 20161101
  2. LEVOTHYROXINE. [Concomitant]
     Active Substance: LEVOTHYROXINE
     Dosage: RECEIVED FROM 01?SEP?2010 TO 30?JUN?2012, 01?JUL?2012 TO 31?OCT?2016 AND 01?NOV?2016 TO CONTINUE
     Dates: start: 20100901
  3. DOCETAXEL ACCORD [Suspect]
     Active Substance: DOCETAXEL
     Indication: BREAST CANCER
     Dates: start: 20140327, end: 20140529
  4. BENICAR [Concomitant]
     Active Substance: OLMESARTAN MEDOXOMIL
     Dosage: RECEIVED FROM 01?OCT?2009 TO 30?JUN?2012 AND 01?JUL?2012 TO 30?OCT?2016
     Dates: start: 20091001, end: 20161030

REACTIONS (1)
  - Alopecia [Not Recovered/Not Resolved]

NARRATIVE: CASE EVENT DATE: 20141201
